FAERS Safety Report 15335445 (Version 1)
Quarter: 2018Q3

REPORT INFORMATION
  Report Type: Spontaneous
  Country: JP (occurrence: JP)
  Receive Date: 20180830
  Receipt Date: 20180830
  Transmission Date: 20181010
  Serious: Yes (Death)
  Sender: FDA-Public Use
  Company Number: JP-PFIZER INC-2018348613

PATIENT
  Age: 59 Year
  Sex: Male

DRUGS (6)
  1. HEPARIN [Suspect]
     Active Substance: HEPARIN SODIUM
     Indication: PORTAL VEIN PHLEBITIS
     Route: 042
  2. MEROPENEM. [Suspect]
     Active Substance: MEROPENEM
     Indication: PORTAL VEIN PHLEBITIS
     Dosage: UNK
     Route: 042
  3. MEROPENEM. [Suspect]
     Active Substance: MEROPENEM
     Indication: LIVER ABSCESS
  4. VASOPRESSIN. [Suspect]
     Active Substance: VASOPRESSIN
     Indication: SEPTIC SHOCK
     Dosage: UNK (MASSIVE AND CONTINUOUS INFUSION)
  5. NORADRENALINE HYDROCHLORIDE [Suspect]
     Active Substance: NOREPINEPHRINE HYDROCHLORIDE, (+/-)-
     Indication: SEPTIC SHOCK
     Dosage: UNK (MASSIVE AND CONTINUOUS INFUSION)
  6. HEPARIN [Suspect]
     Active Substance: HEPARIN SODIUM
     Indication: LIVER ABSCESS

REACTIONS (1)
  - Drug ineffective [Fatal]
